FAERS Safety Report 15834706 (Version 2)
Quarter: 2019Q1

REPORT INFORMATION
  Report Type: Spontaneous
  Country: US (occurrence: US)
  Receive Date: 20190116
  Receipt Date: 20190118
  Transmission Date: 20190417
  Serious: Yes (Hospitalization, Other)
  Sender: FDA-Public Use
  Company Number: US-PFIZER INC-2019017065

PATIENT
  Age: 70 Year
  Sex: Female
  Weight: 108.84 kg

DRUGS (1)
  1. XELJANZ [Suspect]
     Active Substance: TOFACITINIB CITRATE
     Indication: RHEUMATOID ARTHRITIS
     Dosage: 5 MG, 2X/DAY (1 IN THE MORNING, 1 AT NIGHT)
     Route: 048

REACTIONS (4)
  - Pain [Unknown]
  - Arthritis infective [Not Recovered/Not Resolved]
  - Sepsis [Not Recovered/Not Resolved]
  - Mass [Unknown]

NARRATIVE: CASE EVENT DATE: 201812
